FAERS Safety Report 13662197 (Version 10)
Quarter: 2018Q4

REPORT INFORMATION
  Report Type: Report from Study
  Country: DE (occurrence: DE)
  Receive Date: 20170616
  Receipt Date: 20181004
  Transmission Date: 20190204
  Serious: Yes (Hospitalization, Other)
  Sender: FDA-Public Use
  Company Number: PHHY2017DE038905

PATIENT
  Sex: Female
  Weight: 110 kg

DRUGS (51)
  1. COSENTYX [Suspect]
     Active Substance: SECUKINUMAB
     Dosage: 150 MG, PER APPLICATION
     Route: 065
     Dates: start: 20170314
  2. COSENTYX [Suspect]
     Active Substance: SECUKINUMAB
     Dosage: 150 MG, PER APPLICATION
     Route: 065
     Dates: start: 20170614
  3. NEBIVOLOL. [Concomitant]
     Active Substance: NEBIVOLOL
     Indication: HYPERTENSION
     Dosage: 5 MG, QD (1X WEEKLY)
     Route: 048
     Dates: start: 20170203
  4. METAMIZOLE SODIUM [Concomitant]
     Active Substance: METAMIZOLE SODIUM
     Dosage: 500 MG, 3-4X DAILY
     Route: 048
  5. COSENTYX [Suspect]
     Active Substance: SECUKINUMAB
     Dosage: 150 MG, QW
     Route: 065
     Dates: start: 20160530
  6. COSENTYX [Suspect]
     Active Substance: SECUKINUMAB
     Dosage: 150 MG, QMO
     Route: 065
     Dates: start: 20160614
  7. COSENTYX [Suspect]
     Active Substance: SECUKINUMAB
     Dosage: 150 MG, QMO
     Route: 065
     Dates: start: 20160714
  8. COSENTYX [Suspect]
     Active Substance: SECUKINUMAB
     Dosage: 150 MG, QMO
     Route: 065
     Dates: start: 20161114
  9. COSENTYX [Suspect]
     Active Substance: SECUKINUMAB
     Dosage: 150 MG, QMO
     Route: 065
     Dates: start: 20161214
  10. PREDNISOLONE. [Concomitant]
     Active Substance: PREDNISOLONE
     Dosage: 50 MG, 1X DAILY, WITH 5 MG INTERPRETED AS 50 MG, REDUCTION UNTIL END DOSE 5 M ,INTERPRETED AS 5 MG
     Route: 048
     Dates: start: 20170203
  11. DEKRISTOL [Concomitant]
     Active Substance: CHOLECALCIFEROL
     Indication: OSTEOPOROSIS
     Dosage: 1000 IU, 1X EVERY 14 DAYS
     Route: 048
     Dates: start: 20170203
  12. OXYGESIC [Concomitant]
     Active Substance: OXYCODONE
     Indication: PAIN
     Dosage: 20 MG, BID
     Route: 048
     Dates: start: 20120724, end: 20120726
  13. COSENTYX [Suspect]
     Active Substance: SECUKINUMAB
     Dosage: 150 MG, QW
     Route: 065
     Dates: start: 20160606
  14. PREDNISOLONE. [Concomitant]
     Active Substance: PREDNISOLONE
     Indication: ANKYLOSING SPONDYLITIS
     Dosage: 7.5 MG, QD
     Route: 048
     Dates: start: 20160415, end: 20161107
  15. PREDNISOLONE. [Concomitant]
     Active Substance: PREDNISOLONE
     Indication: TREATMENT FAILURE
     Dosage: 10 MG, QD
     Route: 048
     Dates: start: 20161124, end: 20161208
  16. PREDNISOLONE. [Concomitant]
     Active Substance: PREDNISOLONE
     Dosage: 7.5 MG, QD
     Route: 048
     Dates: start: 20161209, end: 20170125
  17. TARGIN [Concomitant]
     Active Substance: NALOXONE HYDROCHLORIDE\OXYCODONE HYDROCHLORIDE
     Indication: PAIN
     Dosage: 10/5 MG, 1 DF, BID
     Route: 048
     Dates: start: 20080912, end: 20160315
  18. TARGIN [Concomitant]
     Active Substance: NALOXONE HYDROCHLORIDE\OXYCODONE HYDROCHLORIDE
     Dosage: 20/10MG, 1 DF, BID
     Route: 048
     Dates: start: 20160316
  19. MTX [Concomitant]
     Active Substance: METHOTREXATE SODIUM
     Indication: TREATMENT FAILURE
  20. COSENTYX [Suspect]
     Active Substance: SECUKINUMAB
     Indication: ANKYLOSING SPONDYLITIS
     Dosage: 150 MG, QW
     Route: 065
     Dates: start: 20160517
  21. QUENSYL [Concomitant]
     Active Substance: HYDROXYCHLOROQUINE
     Indication: ANKYLOSING SPONDYLITIS
     Dosage: 200 DF, BID
     Route: 048
     Dates: start: 20160316
  22. PREDNISOLONE. [Concomitant]
     Active Substance: PREDNISOLONE
     Indication: RHEUMATIC DISORDER
     Dosage: 5 MG, QD
     Route: 048
     Dates: start: 20161108, end: 20161124
  23. TORASEMIDE [Concomitant]
     Active Substance: TORSEMIDE
     Indication: HYPERTENSIVE HEART DISEASE
  24. COTRIM [Concomitant]
     Active Substance: SULFAMETHOXAZOLE\TRIMETHOPRIM
     Indication: PROPHYLAXIS
     Dosage: 960 MG, 3X WEEKLYUNTIL DOSE REDUCTION PREDNISOLONE 20 MG (MONDAYS, WENDNESDAYS AND FRIDAYS 1X1)
     Route: 048
     Dates: start: 20170203, end: 201703
  25. COSENTYX [Suspect]
     Active Substance: SECUKINUMAB
     Dosage: 150 MG, PER APPLICATION
     Route: 065
     Dates: start: 20170514
  26. PREDNISOLONE. [Concomitant]
     Active Substance: PREDNISOLONE
     Dosage: 15 MG, QD
     Route: 048
     Dates: start: 20170125, end: 20170126
  27. AMINEURIN [Concomitant]
     Active Substance: AMITRIPTYLINE HYDROCHLORIDE
     Indication: PAIN
     Dosage: 25 MG, QD
     Route: 048
     Dates: start: 20080912
  28. ALENDRONIC ACID [Concomitant]
     Active Substance: ALENDRONIC ACID
     Indication: OSTEOPOROSIS
     Dosage: 70 MG, QD
     Route: 048
     Dates: start: 201602
  29. NOVOTHYRAL [Concomitant]
     Active Substance: LEVOTHYROXINE SODIUM\LIOTHYRONINE SODIUM
     Indication: HYPERTHYROIDISM
     Dosage: 100 MG, QD
     Route: 048
     Dates: start: 1980
  30. FOLIC ACID. [Concomitant]
     Active Substance: FOLIC ACID
     Indication: PRODUCT USED FOR UNKNOWN INDICATION
     Dosage: 5 MG, QW
     Route: 048
     Dates: start: 20170203
  31. OMEPRAZOLE. [Concomitant]
     Active Substance: OMEPRAZOLE
     Indication: GASTROOESOPHAGEAL REFLUX PROPHYLAXIS
     Dosage: 20 MG, QD
     Route: 048
     Dates: start: 2006
  32. COSENTYX [Suspect]
     Active Substance: SECUKINUMAB
     Dosage: 150 MG, QW
     Route: 065
     Dates: start: 20160523
  33. COSENTYX [Suspect]
     Active Substance: SECUKINUMAB
     Dosage: 150 MG, QW
     Route: 065
     Dates: start: 20160530
  34. COSENTYX [Suspect]
     Active Substance: SECUKINUMAB
     Dosage: 150 MG, PER APPLICATION
     Route: 065
     Dates: start: 20170414
  35. ARCOXIA [Concomitant]
     Active Substance: ETORICOXIB
     Indication: PAIN
     Dosage: 90 MG,
     Route: 048
     Dates: start: 20080912, end: 20170126
  36. METAMIZOLE SODIUM [Concomitant]
     Active Substance: METAMIZOLE SODIUM
     Indication: PAIN
     Dosage: 500 MG, 3-4X DAILY
     Route: 048
  37. COSENTYX [Suspect]
     Active Substance: SECUKINUMAB
     Dosage: 150 MG, QMO
     Route: 065
     Dates: start: 20170114
  38. PANTOPRAZOLE [Concomitant]
     Active Substance: PANTOPRAZOLE
     Indication: PRODUCT USED FOR UNKNOWN INDICATION
     Dosage: 40 MG, QD
     Route: 048
     Dates: start: 2008
  39. NOVOTHYRAL [Concomitant]
     Active Substance: LEVOTHYROXINE SODIUM\LIOTHYRONINE SODIUM
     Indication: AUTOIMMUNE THYROIDITIS
  40. TORASEMIDE [Concomitant]
     Active Substance: TORSEMIDE
     Indication: HYPERTENSION
     Dosage: 10 MG, QD
     Route: 048
     Dates: start: 2009
  41. OXYGESIC [Concomitant]
     Active Substance: OXYCODONE
     Dosage: 20 MG, BID
     Route: 048
     Dates: start: 20170203, end: 20170206
  42. MTX [Concomitant]
     Active Substance: METHOTREXATE SODIUM
     Indication: ANKYLOSING SPONDYLITIS
     Dosage: 20 MG, QW (1X WEEKLY)
     Route: 058
     Dates: start: 20170203
  43. L-THYROXINE [Concomitant]
     Active Substance: LEVOTHYROXINE
     Indication: HYPERTHYROIDISM
     Dosage: 50 UG, QD
     Route: 048
     Dates: start: 2006
  44. COSENTYX [Suspect]
     Active Substance: SECUKINUMAB
     Dosage: 150 MG, QMO
     Route: 065
     Dates: start: 20160814
  45. COSENTYX [Suspect]
     Active Substance: SECUKINUMAB
     Dosage: 150 MG, QMO
     Route: 065
     Dates: start: 20160914
  46. COSENTYX [Suspect]
     Active Substance: SECUKINUMAB
     Dosage: 150 MG, QMO
     Route: 065
     Dates: start: 20161014
  47. COSENTYX [Suspect]
     Active Substance: SECUKINUMAB
     Dosage: 150 MG, QMO
     Route: 065
     Dates: start: 20161014
  48. COSENTYX [Suspect]
     Active Substance: SECUKINUMAB
     Dosage: 150 MG, PER APPLICATION
     Route: 065
     Dates: start: 20170214
  49. NOVAMINOSULFON [Concomitant]
     Active Substance: METAMIZOLE SODIUM
     Indication: PAIN
     Dosage: 500 MG, 3-4X DAILY
     Route: 048
     Dates: start: 20141029
  50. ARCOXIA [Concomitant]
     Active Substance: ETORICOXIB
     Dosage: 60 MG, QD
     Route: 048
     Dates: start: 20170203
  51. DEKRISTOL [Concomitant]
     Active Substance: CHOLECALCIFEROL
     Dosage: 1000 IU, 1X EVERY 14 DAYS
     Route: 048

REACTIONS (17)
  - Spondyloarthropathy [Recovered/Resolved]
  - Arthritis [Recovered/Resolved]
  - Red blood cell sedimentation rate increased [Unknown]
  - Blood lactate dehydrogenase increased [Unknown]
  - Alanine aminotransferase increased [Recovered/Resolved]
  - Blood glucose increased [Unknown]
  - Alpha 1 globulin increased [Unknown]
  - Treatment failure [Recovering/Resolving]
  - Cushing^s syndrome [Not Recovered/Not Resolved]
  - Blood creatinine increased [Not Recovered/Not Resolved]
  - Red blood cell count decreased [Unknown]
  - Interstitial lung disease [Recovering/Resolving]
  - Glomerular filtration rate decreased [Unknown]
  - Polyarthritis [Unknown]
  - Inflammatory marker increased [Unknown]
  - Cushingoid [Not Recovered/Not Resolved]
  - Alpha 2 globulin increased [Unknown]

NARRATIVE: CASE EVENT DATE: 20170126
